FAERS Safety Report 4383891-2 (Version None)
Quarter: 2004Q2

REPORT INFORMATION
  Report Type: 
  Country: None (occurrence: None)
  Receive Date: 20040617
  Receipt Date: 20040609
  Transmission Date: 20050107
  Serious: Yes (Hospitalization)
  Sender: FDA-Public Use
  Company Number: 2003191245JP

PATIENT
  Age: 73 Year
  Sex: Male
  Weight: 68 kg

DRUGS (14)
  1. CABERGOLINE [Suspect]
     Indication: PARKINSON'S DISEASE
     Dosage: SEE IMAGE
     Route: 048
     Dates: start: 20030905, end: 20031030
  2. CABERGOLINE [Suspect]
     Indication: PARKINSON'S DISEASE
     Dosage: SEE IMAGE
     Route: 048
     Dates: end: 20031113
  3. CABERGOLINE [Suspect]
     Indication: PARKINSON'S DISEASE
     Dosage: SEE IMAGE
     Route: 048
     Dates: start: 20031031
  4. CARBIDOPA AND LEVODOPA [Suspect]
     Indication: PARKINSON'S DISEASE
     Dosage: 600 MG, TID
     Dates: start: 20030901
  5. DISOPYRAMIDE [Concomitant]
  6. MAGNESIUM OXIDE [Concomitant]
  7. NORVASC [Concomitant]
  8. ASPIRIN [Concomitant]
  9. PAXIL [Concomitant]
  10. CONSTAN [Concomitant]
  11. TANDOSPIRONE CITRATE [Concomitant]
  12. LENDORM [Concomitant]
  13. PURSENNID (SENNA LEAF) [Concomitant]
  14. DEPAS (ETIZOLAM) [Concomitant]

REACTIONS (6)
  - ABNORMAL DREAMS [None]
  - AGGRESSION [None]
  - DELUSION [None]
  - FEELING ABNORMAL [None]
  - HALLUCINATION, VISUAL [None]
  - INSOMNIA [None]
